FAERS Safety Report 14238214 (Version 1)
Quarter: 2017Q4

REPORT INFORMATION
  Report Type: Other
  Country: JP (occurrence: JP)
  Receive Date: 20171130
  Receipt Date: 20171130
  Transmission Date: 20180321
  Serious: Yes (Other)
  Sender: FDA-Public Use
  Company Number: JP-AJANTA PHARMA USA INC.-2036361

PATIENT

DRUGS (5)
  1. OLANZAPINE (ANDA 204320) [Suspect]
     Active Substance: OLANZAPINE
     Indication: PROPHYLAXIS OF NAUSEA AND VOMITING
     Route: 048
  2. HIGHLY EMETOGENIC CHEMOTHERAPY [Concomitant]
  3. APREPITANT. [Concomitant]
     Active Substance: APREPITANT
     Route: 048
  4. PALONOSETRON HYDROCHLORIDE. [Concomitant]
     Active Substance: PALONOSETRON HYDROCHLORIDE
     Route: 042
  5. DEXAMETHASONE. [Concomitant]
     Active Substance: DEXAMETHASONE

REACTIONS (1)
  - Hyponatraemia [Unknown]

NARRATIVE: CASE EVENT DATE: 20171016
